FAERS Safety Report 10163702 (Version 3)
Quarter: 2014Q3

REPORT INFORMATION
  Report Type: Report from Study
  Country: DE (occurrence: NL)
  Receive Date: 20140509
  Receipt Date: 20140829
  Transmission Date: 20150326
  Serious: Yes (Death, Hospitalization)
  Sender: FDA-Public Use
  Company Number: DE-ACTELION-A-US2010-98297

PATIENT
  Age: 74 Year
  Sex: Male

DRUGS (7)
  1. INSPRA [Concomitant]
     Active Substance: EPLERENONE
  2. VENTAVIS [Suspect]
     Active Substance: ILOPROST
     Indication: PULMONARY ARTERIAL HYPERTENSION
     Dosage: 6 AMPOULES DAILY
     Route: 055
     Dates: start: 20101007
  3. BURINEX [Concomitant]
     Active Substance: BUMETANIDE
  4. COLCHICINE. [Concomitant]
     Active Substance: COLCHICINE
  5. REVATIO [Concomitant]
     Active Substance: SILDENAFIL CITRATE
  6. IMURAN [Concomitant]
     Active Substance: AZATHIOPRINE
  7. NORVASC [Concomitant]
     Active Substance: AMLODIPINE BESYLATE

REACTIONS (8)
  - Nasopharyngitis [Unknown]
  - Malaise [Unknown]
  - Disease progression [Fatal]
  - Nausea [Unknown]
  - Vomiting [Unknown]
  - Pulmonary arterial hypertension [Fatal]
  - Cardiac disorder [Unknown]
  - General physical health deterioration [Unknown]
